FAERS Safety Report 8420386-0 (Version None)
Quarter: 2012Q2

REPORT INFORMATION
  Report Type: 
  Country: None (occurrence: None)
  Receive Date: 20120607
  Receipt Date: 20120605
  Transmission Date: 20120825
  Serious: Yes (Death)
  Sender: FDA-Public Use
  Company Number: AF-MERCK-1204USA02697

PATIENT

DRUGS (1)
  1. PRIMAXIN [Suspect]
     Route: 065

REACTIONS (2)
  - TREATMENT FAILURE [None]
  - INFECTION [None]
